FAERS Safety Report 6715977-9 (Version None)
Quarter: 2010Q2

REPORT INFORMATION
  Report Type: 
  Country: None (occurrence: None)
  Receive Date: 20100507
  Receipt Date: 20100429
  Transmission Date: 20101027
  Serious: Yes (Hospitalization, Other)
  Sender: FDA-Public Use
  Company Number: US-BAYER-201020958NA

PATIENT
  Age: 36 Year
  Sex: Female

DRUGS (2)
  1. MIRENA [Suspect]
     Indication: CONTRACEPTION
     Dosage: FREQUENCY: CONTINUOUS
     Route: 015
     Dates: start: 20050101, end: 20070101
  2. ANTIDEPRESSANTS [Suspect]

REACTIONS (8)
  - ADVERSE EVENT [None]
  - CERVIX DISORDER [None]
  - HYPERTENSION [None]
  - LIBIDO DECREASED [None]
  - PELVIC MASS [None]
  - RENAL DISORDER [None]
  - UTERINE HAEMORRHAGE [None]
  - WEIGHT INCREASED [None]
